FAERS Safety Report 9444099 (Version 1)
Quarter: 2013Q3

REPORT INFORMATION
  Report Type: Spontaneous
  Country: US (occurrence: None)
  Receive Date: 20130806
  Receipt Date: 20130806
  Transmission Date: 20140515
  Serious: Yes (Other)
  Sender: FDA-Public Use
  Company Number: None

PATIENT
  Sex: Female
  Weight: 68.04 kg

DRUGS (8)
  1. ORPHENADRINE [Suspect]
     Indication: HEADACHE
     Dosage: 100 MG TAB #60 MOUTH ?TOOK 1 DID NOT TAKE ANYMORE
     Route: 048
  2. ORPHENADRINE [Suspect]
     Dosage: 100 MG TAB #60 MOUTH ?TOOK 1 DID NOT TAKE ANYMORE
     Route: 048
  3. LOTREL [Concomitant]
  4. SYNTHROID [Concomitant]
  5. ZOCOR [Concomitant]
  6. NEURONTIN [Concomitant]
  7. HYDROCHLOROTHIAZIDE [Concomitant]
  8. FIORINAL [Concomitant]

REACTIONS (3)
  - Asthenia [None]
  - Dysstasia [None]
  - Muscle disorder [None]
